FAERS Safety Report 9953305 (Version 2)
Quarter: 2014Q1

REPORT INFORMATION
  Report Type: Report from Study
  Country: US (occurrence: US)
  Receive Date: 20140304
  Receipt Date: 20140304
  Transmission Date: 20141002
  Serious: No
  Sender: FDA-Public Use
  Company Number: US-ABBVIE-13P-163-1070522-00

PATIENT
  Age: 36 Year
  Sex: Male

DRUGS (11)
  1. HUMIRA [Suspect]
     Indication: CROHN^S DISEASE
     Dosage: STARTING DOSE
     Route: 058
     Dates: start: 20130312
  2. HUMIRA [Suspect]
     Dosage: LOADING DOSE
     Route: 058
     Dates: start: 20130326, end: 20130326
  3. HUMIRA [Suspect]
     Route: 058
  4. XANAX [Concomitant]
     Indication: ANXIETY
  5. OXYMORPHONE HYDROCHLORIDE [Concomitant]
     Indication: PAIN
  6. ISONIAZID [Concomitant]
     Indication: TUBERCULOSIS
  7. OXYCODONE HCL [Concomitant]
     Indication: BREAKTHROUGH PAIN
  8. VITAMIN B6 [Concomitant]
     Indication: PRODUCT USED FOR UNKNOWN INDICATION
  9. CYMBALTA [Concomitant]
     Indication: DEPRESSION
  10. DEXILANT [Concomitant]
     Indication: GASTROOESOPHAGEAL REFLUX DISEASE
  11. MORPHINE SULFATE [Concomitant]
     Indication: PAIN

REACTIONS (4)
  - Injection site discolouration [Recovered/Resolved]
  - Injection site pruritus [Recovered/Resolved]
  - Injection site reaction [Recovered/Resolved]
  - Injection site erythema [Recovered/Resolved]
